FAERS Safety Report 21215119 (Version 2)
Quarter: 2022Q4

REPORT INFORMATION
  Report Type: Spontaneous
  Country: US (occurrence: US)
  Receive Date: 20220816
  Receipt Date: 20221103
  Transmission Date: 20230113
  Serious: Yes (Other)
  Sender: FDA-Public Use
  Company Number: US-SANOFI-01227903

PATIENT
  Age: 76 Year
  Sex: Female
  Weight: 200 kg

DRUGS (1)
  1. LANTUS SOLOSTAR [Suspect]
     Active Substance: INSULIN GLARGINE
     Indication: Type 2 diabetes mellitus
     Dosage: 60 UNITS QD AND DRUG TREATMENT DURATION:PLUNGER BELOW 260
     Route: 058

REACTIONS (2)
  - Breast cancer female [Unknown]
  - Surgery [Unknown]
